FAERS Safety Report 7058771-4 (Version None)
Quarter: 2010Q4

REPORT INFORMATION
  Report Type: 
  Country: None (occurrence: None)
  Receive Date: 20101022
  Receipt Date: 20101014
  Transmission Date: 20110411
  Serious: Yes (Other)
  Sender: FDA-Public Use
  Company Number: CA-ABBOTT-10P-028-0678914-00

PATIENT
  Sex: Male

DRUGS (1)
  1. LUPRON DEPOT [Suspect]
     Indication: PROSTATE CANCER
     Dates: start: 20040127

REACTIONS (4)
  - ABDOMINAL PAIN LOWER [None]
  - THROMBOSIS [None]
  - URINARY RETENTION [None]
  - URINARY TRACT INFECTION [None]
